FAERS Safety Report 5489467-8 (Version None)
Quarter: 2007Q4

REPORT INFORMATION
  Report Type: 
  Country: None (occurrence: None)
  Receive Date: 20071018
  Receipt Date: 20071016
  Transmission Date: 20080405
  Serious: Yes (Other)
  Sender: FDA-Public Use
  Company Number: A0687915A

PATIENT
  Age: 60 Year
  Sex: Male
  Weight: 122.7 kg

DRUGS (3)
  1. ALLI [Suspect]
     Dates: start: 20071006
  2. MULTI-VITAMIN [Concomitant]
  3. BLOOD PRESSURE MEDICATION [Concomitant]

REACTIONS (8)
  - ASTHENIA [None]
  - COLD SWEAT [None]
  - DIZZINESS [None]
  - FALL [None]
  - GAIT DISTURBANCE [None]
  - LOSS OF CONSCIOUSNESS [None]
  - MEMORY IMPAIRMENT [None]
  - SYNCOPE [None]
